FAERS Safety Report 20659063 (Version 7)
Quarter: 2023Q1

REPORT INFORMATION
  Report Type: Spontaneous
  Country: US (occurrence: US)
  Receive Date: 20220331
  Receipt Date: 20230227
  Transmission Date: 20230417
  Serious: No
  Sender: FDA-Public Use
  Company Number: US-PFIZER INC-202200359552

PATIENT
  Age: 11 Year
  Sex: Male
  Weight: 28.12 kg

DRUGS (4)
  1. GENOTROPIN [Suspect]
     Active Substance: SOMATROPIN
     Indication: Short stature
     Dosage: 12 MG (ONE CARTRIDGE)
  2. GENOTROPIN [Suspect]
     Active Substance: SOMATROPIN
     Dosage: 0.6 ML
  3. GENOTROPIN [Suspect]
     Active Substance: SOMATROPIN
     Dosage: DAILY (EVERY DAY 0.6 IN THE LEG - ALTERNATES LEG)
  4. LUPRON [Concomitant]
     Active Substance: LEUPROLIDE ACETATE
     Dosage: UNK, EVERY 3 MONTHS
     Dates: start: 2022

REACTIONS (6)
  - Wrong technique in device usage process [Unknown]
  - Incorrect dose administered [Unknown]
  - Expired device used [Unknown]
  - Device power source issue [Unknown]
  - Device use issue [Unknown]
  - Pain in extremity [Unknown]
